FAERS Safety Report 7328760-0 (Version None)
Quarter: 2011Q1

REPORT INFORMATION
  Report Type: 
  Country: None (occurrence: None)
  Receive Date: 20110303
  Receipt Date: 20110218
  Transmission Date: 20110831
  Serious: Yes (Other)
  Sender: FDA-Public Use
  Company Number: PHHY2011US03009

PATIENT
  Sex: Female

DRUGS (6)
  1. RECLAST [Suspect]
     Dosage: 5 MG/100 ML, ONCE YEARLY
     Dates: start: 20101102
  2. LIPITOR [Concomitant]
  3. ACETYLSALICYLIC ACID [Concomitant]
  4. EVISTA [Concomitant]
  5. HYDROCHLOROTHIAZIDE [Concomitant]
  6. BENAZEPLUS [Concomitant]

REACTIONS (3)
  - OEDEMA PERIPHERAL [None]
  - INTRAOCULAR PRESSURE INCREASED [None]
  - PAIN [None]
